FAERS Safety Report 14802402 (Version 1)
Quarter: 2018Q2

REPORT INFORMATION
  Report Type: Spontaneous
  Country: US (occurrence: US)
  Receive Date: 20180424
  Receipt Date: 20180424
  Transmission Date: 20180711
  Serious: Yes (Other)
  Sender: FDA-Public Use
  Company Number: US-PURDUE PHARMA-USA-2018-0143189

PATIENT
  Age: 60 Year
  Sex: Male

DRUGS (2)
  1. OXYCONTIN [Suspect]
     Active Substance: OXYCODONE HYDROCHLORIDE
     Dosage: 40 MG, BID
     Route: 048
     Dates: start: 201604
  2. OXYCONTIN [Suspect]
     Active Substance: OXYCODONE HYDROCHLORIDE
     Indication: SPINAL PAIN
     Dosage: 40 MG, BID
     Route: 048
     Dates: start: 201803

REACTIONS (6)
  - Abdominal distension [Unknown]
  - Dyspepsia [Unknown]
  - Drug ineffective [Unknown]
  - Pain [Unknown]
  - Drug dependence [Unknown]
  - Drug tolerance [Unknown]

NARRATIVE: CASE EVENT DATE: 201704
